FAERS Safety Report 10080750 (Version 10)
Quarter: 2018Q4

REPORT INFORMATION
  Report Type: Report from Study
  Country: AU (occurrence: AU)
  Receive Date: 20140416
  Receipt Date: 20181202
  Transmission Date: 20190204
  Serious: Yes (Hospitalization, Other)
  Sender: FDA-Public Use
  Company Number: PHHY2014AU037820

PATIENT
  Age: 27 Year
  Sex: Female
  Weight: 50 kg

DRUGS (10)
  1. STI 571 [Suspect]
     Active Substance: IMATINIB
     Dosage: 100 MG, QD
     Route: 048
  2. SILDENAFIL. [Concomitant]
     Active Substance: SILDENAFIL
     Dosage: 50 MG, TID
     Route: 048
     Dates: start: 201308
  3. SPIRONOLACTONE. [Concomitant]
     Active Substance: SPIRONOLACTONE
     Indication: PULMONARY ARTERIAL HYPERTENSION
     Dosage: 25 MG, QD
     Route: 065
     Dates: start: 20120414
  4. VITAMIN D [Concomitant]
     Active Substance: CHOLECALCIFEROL
     Indication: SUPPLEMENTATION THERAPY
     Route: 065
  5. STI 571 [Suspect]
     Active Substance: IMATINIB
     Dosage: 200 MG, QD
     Route: 048
     Dates: start: 201204
  6. STI 571 [Suspect]
     Active Substance: IMATINIB
     Dosage: 200 MG, QD
     Route: 048
  7. STI 571 [Suspect]
     Active Substance: IMATINIB
     Dosage: 200 MG, QD
     Route: 048
     Dates: start: 20181126
  8. SILDENAFIL. [Concomitant]
     Active Substance: SILDENAFIL
     Indication: PULMONARY ARTERIAL HYPERTENSION
     Dosage: 25 MG, TID
     Route: 048
     Dates: start: 201203
  9. STI 571 [Suspect]
     Active Substance: IMATINIB
     Indication: PULMONARY ARTERIAL HYPERTENSION
     Dosage: 400 MG, QD
     Route: 048
     Dates: start: 201203
  10. BOSENTAN. [Concomitant]
     Active Substance: BOSENTAN
     Indication: PULMONARY ARTERIAL HYPERTENSION
     Dosage: 125 MG, BID
     Route: 065
     Dates: start: 20100829

REACTIONS (11)
  - Palpitations [Recovering/Resolving]
  - Presyncope [Recovering/Resolving]
  - Oxygen saturation decreased [Unknown]
  - Dyspnoea [Recovering/Resolving]
  - Right ventricular hypertrophy [Unknown]
  - Condition aggravated [Recovering/Resolving]
  - Pulmonary arterial hypertension [Recovering/Resolving]
  - Tricuspid valve incompetence [Unknown]
  - Pericardial effusion [Unknown]
  - Right atrial dilatation [Unknown]
  - Dizziness [Unknown]

NARRATIVE: CASE EVENT DATE: 20140325
